FAERS Safety Report 8352407-8 (Version None)
Quarter: 2012Q2

REPORT INFORMATION
  Report Type: 
  Country: None (occurrence: None)
  Receive Date: 20120509
  Receipt Date: 20120425
  Transmission Date: 20120825
  Serious: Yes (Other)
  Sender: FDA-Public Use
  Company Number: NSR_00545_2012

PATIENT
  Sex: Male
  Weight: 79.3795 kg

DRUGS (4)
  1. ATENOLOL [Concomitant]
  2. NIACIN [Concomitant]
  3. ALLOPURINOL [Suspect]
     Indication: GOUT
     Dosage: 100 MG, QD, ORAL
     Route: 048
     Dates: start: 20111001
  4. CHERRY EXTRACT [Concomitant]

REACTIONS (10)
  - HEPATIC ENZYME INCREASED [None]
  - DIARRHOEA [None]
  - DECREASED APPETITE [None]
  - WEIGHT INCREASED [None]
  - URINE COLOUR ABNORMAL [None]
  - DYSURIA [None]
  - ASCITES [None]
  - NAUSEA [None]
  - HAEMATURIA [None]
  - FAECES DISCOLOURED [None]
